FAERS Safety Report 4433544-7 (Version None)
Quarter: 2004Q3

REPORT INFORMATION
  Report Type: 
  Country: None (occurrence: None)
  Receive Date: 20040825
  Receipt Date: 20040817
  Transmission Date: 20050211
  Serious: Yes (Death)
  Sender: FDA-Public Use
  Company Number: 04-08-1208

PATIENT
  Age: 40 Year
  Sex: Female

DRUGS (1)
  1. CLOZAPINE [Suspect]
     Dosage: 150-900MG QD ORAL
     Route: 048
     Dates: start: 20020201, end: 20040701

REACTIONS (1)
  - SUICIDE ATTEMPT [None]
